FAERS Safety Report 6678289-8 (Version None)
Quarter: 2010Q2

REPORT INFORMATION
  Report Type: 
  Country: None (occurrence: None)
  Receive Date: 20100408
  Receipt Date: 20100325
  Transmission Date: 20101027
  Serious: Yes (Other)
  Sender: FDA-Public Use
  Company Number: B0644760A

PATIENT
  Age: 43 Year
  Sex: Female

DRUGS (2)
  1. THYROXINE SODIUM (FORMULATION UNKNOWN) [Suspect]
     Indication: DRUG USE FOR UNKNOWN INDICATION
  2. ORLISTAT (FORMULATION UNKNOWN) (ORLISTAT) [Suspect]
     Indication: WEIGHT DECREASED
     Dates: start: 20070901, end: 20080501

REACTIONS (2)
  - DRUG INEFFECTIVE [None]
  - DRUG INTERACTION [None]
